FAERS Safety Report 7413518-4 (Version None)
Quarter: 2011Q2

REPORT INFORMATION
  Report Type: 
  Country: None (occurrence: None)
  Receive Date: 20110413
  Receipt Date: 20110412
  Transmission Date: 20111010
  Serious: Yes (Death, Other)
  Sender: FDA-Public Use
  Company Number: JP-PFIZER INC-2010179312

PATIENT
  Age: 68 Year
  Sex: Female
  Weight: 54 kg

DRUGS (9)
  1. FEMARA [Concomitant]
     Indication: HORMONE THERAPY
     Dosage: 2.5 MG, 1X/DAY
     Route: 048
     Dates: start: 20100123, end: 20101211
  2. TAKEPRON [Concomitant]
     Indication: GASTRIC ULCER
     Dosage: 30 MG, 1X/DAY
     Route: 048
     Dates: start: 20101112, end: 20101211
  3. LYRICA [Suspect]
     Indication: PAIN
     Dosage: UNK
     Route: 048
     Dates: start: 20101117, end: 20101211
  4. FENTANYL CITRATE [Concomitant]
     Indication: PAIN
     Dosage: 10 MG, 1X/DAY
     Route: 062
     Dates: start: 20101210, end: 20101214
  5. ANPEC [Concomitant]
     Indication: PAIN
     Dosage: UNK
     Route: 041
     Dates: start: 20101215, end: 20101217
  6. MS CONTIN [Concomitant]
     Indication: PAIN
     Dosage: 90 MG, 2X/DAY
     Route: 047
     Dates: start: 20100126, end: 20101209
  7. CELECOXIB [Concomitant]
     Indication: PAIN
     Dosage: 100 MG, 2X/DAY
     Route: 048
     Dates: start: 20101110, end: 20101211
  8. CYTOTEC [Concomitant]
     Indication: PROPHYLAXIS AGAINST GASTROINTESTINAL ULCER
     Dosage: 200 UG, 4X/DAY
     Route: 048
     Dates: start: 20101110, end: 20101211
  9. TRYPTANOL [Concomitant]
     Indication: ANALGESIC INTERVENTION SUPPORTIVE THERAPY
     Dosage: 10 MG, 1X/DAY
     Route: 048
     Dates: start: 20100623, end: 20101211

REACTIONS (6)
  - CARDIAC FAILURE [None]
  - VOMITING [None]
  - OEDEMA PERIPHERAL [None]
  - NAUSEA [None]
  - DIZZINESS [None]
  - ERYTHEMA [None]
